FAERS Safety Report 9845641 (Version 1)
Quarter: 2013Q4

REPORT INFORMATION
  Report Type: Spontaneous
  Country: US (occurrence: None)
  Receive Date: 20131219
  Receipt Date: 20131219
  Transmission Date: 20140711
  Serious: Yes (Hospitalization)
  Sender: FDA-Public Use
  Company Number: 163-20785-13083867

PATIENT
  Age: 80 Year
  Sex: Male

DRUGS (2)
  1. THALOMID (THALIDOMIDE) (150 MILLIGRAM, CAPSULES) [Suspect]
     Indication: MYELODYSPLASTIC SYNDROME
     Route: 048
     Dates: start: 201307
  2. DEXAMETHASONE (DEXAMETHASONE) (UNKNOWN) [Suspect]

REACTIONS (1)
  - Hyperglycaemia [None]
